FAERS Safety Report 12529334 (Version 2)
Quarter: 2016Q3

REPORT INFORMATION
  Report Type: Spontaneous
  Country: US (occurrence: US)
  Receive Date: 20160705
  Receipt Date: 20160706
  Transmission Date: 20161109
  Serious: Yes (Hospitalization)
  Sender: FDA-Public Use
  Company Number: US-ASTRAZENECA-2016SE70541

PATIENT
  Age: 50 Year
  Sex: Male
  Weight: 90.7 kg

DRUGS (4)
  1. LISINOPRIL. [Concomitant]
     Active Substance: LISINOPRIL
     Dosage: 5.0MG AS REQUIRED
     Route: 048
  2. MULTIVITAMIN [Concomitant]
     Active Substance: VITAMINS
     Route: 048
  3. FARXIGA [Suspect]
     Active Substance: DAPAGLIFLOZIN PROPANEDIOL
     Route: 048
  4. ASPIRIN. [Concomitant]
     Active Substance: ASPIRIN
     Route: 048

REACTIONS (1)
  - Diabetic ketoacidosis [Unknown]

NARRATIVE: CASE EVENT DATE: 20160223
